FAERS Safety Report 25329364 (Version 1)
Quarter: 2025Q2

REPORT INFORMATION
  Report Type: Report from Study
  Country: CO (occurrence: CO)
  Receive Date: 20250519
  Receipt Date: 20250519
  Transmission Date: 20250717
  Serious: Yes (Other)
  Sender: BIOCODEX
  Company Number: CO-BIOCODEX2-2025000663

PATIENT
  Age: 4 Year
  Sex: Female

DRUGS (5)
  1. DIACOMIT [Suspect]
     Active Substance: STIRIPENTOL
     Indication: Severe myoclonic epilepsy of infancy
     Dosage: 500 MG/8 HOURS
     Route: 048
     Dates: start: 20250129
  2. CLOBAZAM [Concomitant]
     Active Substance: CLOBAZAM
     Indication: Severe myoclonic epilepsy of infancy
     Dosage: 10 MG/12 HOURS
     Route: 065
     Dates: start: 20231101
  3. VALPROIC ACID [Concomitant]
     Active Substance: VALPROIC ACID
     Indication: Severe myoclonic epilepsy of infancy
     Dosage: 3.5 CC/8 HOURS
     Route: 065
     Dates: start: 20210801
  4. VALPROIC ACID [Concomitant]
     Active Substance: VALPROIC ACID
     Indication: Severe myoclonic epilepsy of infancy
     Dosage: 4 CC/8 HOURS
  5. VALPROIC ACID [Concomitant]
     Active Substance: VALPROIC ACID
     Indication: Severe myoclonic epilepsy of infancy
     Dosage: 3.5 CC/ 8 HOURS
     Dates: start: 20250430

REACTIONS (5)
  - Ataxia [Recovered/Resolved]
  - Dystonia [Recovered/Resolved]
  - Hypotonia [Recovered/Resolved]
  - Fall [Recovered/Resolved]
  - Anaemia [Recovered/Resolved]

NARRATIVE: CASE EVENT DATE: 20250429
